FAERS Safety Report 12465107 (Version 1)
Quarter: 2016Q2

REPORT INFORMATION
  Report Type: Other
  Country: IT (occurrence: IT)
  Receive Date: 20160614
  Receipt Date: 20160614
  Transmission Date: 20160815
  Serious: Yes (Hospitalization, Other)
  Sender: FDA-Public Use
  Company Number: IT-TAKEDA-2016TEU003262

PATIENT
  Age: 73 Year
  Sex: Male

DRUGS (6)
  1. LOBIVON [Suspect]
     Active Substance: NEBIVOLOL HYDROCHLORIDE
     Indication: SUICIDE ATTEMPT
     Dosage: UNK
     Route: 048
     Dates: start: 20160414, end: 20160414
  2. TACHIPIRINA [Suspect]
     Active Substance: ACETAMINOPHEN
     Indication: SUICIDE ATTEMPT
     Dosage: UNK
     Route: 048
     Dates: start: 20160414, end: 20160414
  3. METRONIDAZOLE. [Suspect]
     Active Substance: METRONIDAZOLE
     Indication: SUICIDE ATTEMPT
     Dosage: UNK
     Route: 048
     Dates: start: 20160414, end: 20160414
  4. LANSOX [Suspect]
     Active Substance: LANSOPRAZOLE
     Indication: SUICIDE ATTEMPT
     Dosage: UNK
     Route: 048
     Dates: start: 20160414, end: 20160414
  5. VALIUM [Suspect]
     Active Substance: DIAZEPAM
     Indication: SUICIDE ATTEMPT
     Dosage: UNK
     Route: 048
     Dates: start: 20160414, end: 20160414
  6. ANANASE [Suspect]
     Active Substance: BROMELAINS
     Indication: SUICIDE ATTEMPT
     Dosage: UNK
     Route: 048

REACTIONS (3)
  - Intentional self-injury [Unknown]
  - Agitation [Unknown]
  - Suicide attempt [Unknown]

NARRATIVE: CASE EVENT DATE: 20160414
